FAERS Safety Report 13503316 (Version 1)
Quarter: 2017Q2

REPORT INFORMATION
  Report Type: Spontaneous
  Country: US (occurrence: US)
  Receive Date: 20170502
  Receipt Date: 20170502
  Transmission Date: 20170830
  Serious: No
  Sender: FDA-Public Use
  Company Number: None

PATIENT
  Age: 36 Year
  Sex: Female

DRUGS (1)
  1. FLUOCINONIDE. [Suspect]
     Active Substance: FLUOCINONIDE
     Indication: DERMATITIS ATOPIC
     Route: 061
     Dates: start: 20170428

REACTIONS (3)
  - Depression [None]
  - Rash [None]
  - Depressed mood [None]

NARRATIVE: CASE EVENT DATE: 20170502
